FAERS Safety Report 10674767 (Version 1)
Quarter: 2014Q4

REPORT INFORMATION
  Report Type: Spontaneous
  Country: US (occurrence: None)
  Receive Date: 20141223
  Receipt Date: 20141223
  Transmission Date: 20150529
  Serious: Yes (Hospitalization)
  Sender: FDA-Public Use
  Company Number: None

PATIENT
  Age: 84 Year
  Sex: Male
  Weight: 74.5 kg

DRUGS (1)
  1. XTANDI [Suspect]
     Active Substance: ENZALUTAMIDE
     Dosage: ENZALUTAMIDE (XTANDI)
     Route: 048
     Dates: start: 20140611, end: 20141130

REACTIONS (5)
  - Confusional state [None]
  - Tremor [None]
  - Memory impairment [None]
  - Foaming at mouth [None]
  - Disorientation [None]

NARRATIVE: CASE EVENT DATE: 20141130
